FAERS Safety Report 8281824-X (Version None)
Quarter: 2012Q2

REPORT INFORMATION
  Report Type: 
  Country: None (occurrence: None)
  Receive Date: 20120413
  Receipt Date: 20120406
  Transmission Date: 20120825
  Serious: Yes (Other)
  Sender: FDA-Public Use
  Company Number: PHHY2010FR35993

PATIENT
  Age: 42 Year
  Sex: Female

DRUGS (2)
  1. EXTAVIA [Suspect]
     Indication: CLINICALLY ISOLATED SYNDROME
     Dosage: 1 MG, QOD
     Route: 058
     Dates: start: 20100423
  2. ACETAMINOPHEN [Concomitant]

REACTIONS (11)
  - INJECTION SITE ERYTHEMA [None]
  - INJECTION SITE HAEMORRHAGE [None]
  - INJECTION SITE SWELLING [None]
  - MULTIPLE SCLEROSIS RELAPSE [None]
  - FATIGUE [None]
  - INJECTION SITE PAIN [None]
  - INJECTION SITE HAEMATOMA [None]
  - BURNING SENSATION [None]
  - INJECTION SITE MASS [None]
  - PYREXIA [None]
  - APHONIA [None]
